FAERS Safety Report 5994675-3 (Version None)
Quarter: 2008Q4

REPORT INFORMATION
  Report Type: 
  Country: None (occurrence: None)
  Receive Date: 20081209
  Receipt Date: 20080925
  Transmission Date: 20090506
  Serious: No
  Sender: FDA-Public Use
  Company Number: 002#2#2008-00684

PATIENT
  Age: 65 Year
  Sex: Female
  Weight: 81.6475 kg

DRUGS (6)
  1. NEUPRO [Suspect]
     Indication: PARKINSONISM
     Dosage: 2MG/24H,1 IN 1 D,TRANSDERMAL ; 4MG/24H,1 IN 1 D,TRANSDERMAL
     Route: 062
     Dates: start: 20080201, end: 20080801
  2. NEUPRO [Suspect]
     Indication: PARKINSONISM
     Dosage: 2MG/24H,1 IN 1 D,TRANSDERMAL ; 4MG/24H,1 IN 1 D,TRANSDERMAL
     Route: 062
     Dates: start: 20080901
  3. SINEMET [Concomitant]
  4. AZILECT [Concomitant]
  5. AMANTADINE HCL [Concomitant]
  6. GLUCOPHAGE [Concomitant]

REACTIONS (3)
  - DRUG INEFFECTIVE [None]
  - GAIT DISTURBANCE [None]
  - PRODUCT QUALITY ISSUE [None]
